FAERS Safety Report 24432827 (Version 2)
Quarter: 2024Q4

REPORT INFORMATION
  Report Type: Spontaneous
  Country: JP (occurrence: JP)
  Receive Date: 20241014
  Receipt Date: 20241024
  Transmission Date: 20250115
  Serious: Yes (Death, Other)
  Sender: EXELIXIS
  Company Number: JP-TAKEDA-2024TJP014674

PATIENT
  Age: 83 Year
  Sex: Male
  Weight: 60.1 kg

DRUGS (4)
  1. CABOMETYX [Suspect]
     Active Substance: CABOZANTINIB S-MALATE
     Indication: Hepatocellular carcinoma
     Dosage: 20 MILLIGRAM
     Route: 065
     Dates: start: 20230921, end: 20231017
  2. CABOMETYX [Suspect]
     Active Substance: CABOZANTINIB S-MALATE
     Dosage: 40 MILLIGRAM
     Route: 065
     Dates: start: 20231018, end: 20231031
  3. CABOMETYX [Suspect]
     Active Substance: CABOZANTINIB S-MALATE
     Dosage: 20 MILLIGRAM
     Route: 065
     Dates: start: 20231101, end: 20231114
  4. CABOMETYX [Suspect]
     Active Substance: CABOZANTINIB S-MALATE
     Dosage: 20 MILLIGRAM
     Route: 065
     Dates: start: 20231122, end: 20231210

REACTIONS (1)
  - Death [Fatal]

NARRATIVE: CASE EVENT DATE: 20240327
